FAERS Safety Report 23396473 (Version 2)
Quarter: 2024Q1

REPORT INFORMATION
  Report Type: Spontaneous
  Country: US (occurrence: US)
  Receive Date: 20240112
  Receipt Date: 20240119
  Transmission Date: 20240410
  Serious: Yes (Death, Hospitalization, Other)
  Sender: FDA-Public Use
  Company Number: US-SA-SAC20240111002061

PATIENT
  Age: 64 Year
  Sex: Female

DRUGS (8)
  1. HYDROXYCHLOROQUINE [Suspect]
     Active Substance: HYDROXYCHLOROQUINE
     Indication: Suspected suicide attempt
     Dosage: UNK INGESTION
     Route: 048
  2. ESCITALOPRAM OXALATE [Suspect]
     Active Substance: ESCITALOPRAM OXALATE
     Indication: Suspected suicide attempt
     Dosage: UNK (INGESTION)
     Route: 048
  3. HYDROCHLOROTHIAZIDE [Suspect]
     Active Substance: HYDROCHLOROTHIAZIDE
     Indication: Suspected suicide attempt
     Dosage: UNK (INGESTION)
     Route: 048
  4. ZOLPIDEM TARTRATE [Suspect]
     Active Substance: ZOLPIDEM TARTRATE
     Indication: Suspected suicide attempt
     Dosage: UNK (INGESTION)
     Route: 048
  5. QUETIAPINE FUMARATE [Suspect]
     Active Substance: QUETIAPINE FUMARATE
     Indication: Suspected suicide attempt
     Dosage: UNK (INGESTION)
     Route: 048
  6. ROPINIROLE [Suspect]
     Active Substance: ROPINIROLE
     Indication: Suspected suicide attempt
     Route: 048
  7. ZALEPLON [Suspect]
     Active Substance: ZALEPLON
     Indication: Suspected suicide attempt
     Route: 048
  8. BUSPIRONE [Suspect]
     Active Substance: BUSPIRONE HYDROCHLORIDE
     Indication: Suspected suicide attempt
     Dosage: UNK (INGESTION)
     Route: 048

REACTIONS (1)
  - Completed suicide [Fatal]
